FAERS Safety Report 13657622 (Version 3)
Quarter: 2019Q2

REPORT INFORMATION
  Report Type: Spontaneous
  Country: US (occurrence: US)
  Receive Date: 20170615
  Receipt Date: 20190506
  Transmission Date: 20190711
  Serious: Yes (Other)
  Sender: FDA-Public Use
  Company Number: US-ACTELION-A-US2017-155149

PATIENT
  Sex: Male
  Weight: 104.31 kg

DRUGS (5)
  1. OPSUMIT [Suspect]
     Active Substance: MACITENTAN
     Dosage: 10 MG, QD
     Route: 048
  2. ADEMPAS [Concomitant]
     Active Substance: RIOCIGUAT
  3. REVATIO [Suspect]
     Active Substance: SILDENAFIL CITRATE
     Indication: PRODUCT USED FOR UNKNOWN INDICATION
     Route: 065
  4. OPSUMIT [Suspect]
     Active Substance: MACITENTAN
     Indication: PULMONARY ARTERIAL HYPERTENSION
     Dosage: 10 MG, QD
     Route: 048
  5. ADCIRCA [Concomitant]
     Active Substance: TADALAFIL

REACTIONS (6)
  - Gastrointestinal tract irritation [Unknown]
  - Pulmonary arterial hypertension [Unknown]
  - Diarrhoea [Unknown]
  - Environmental exposure [Unknown]
  - Colon cancer stage II [Unknown]
  - Condition aggravated [Unknown]
